FAERS Safety Report 5218339-9 (Version None)
Quarter: 2007Q1

REPORT INFORMATION
  Report Type: 
  Country: None (occurrence: None)
  Receive Date: 20070123
  Receipt Date: 20070123
  Transmission Date: 20070707
  Serious: No
  Sender: FDA-Public Use
  Company Number: None

PATIENT
  Age: 5 Year
  Sex: Male

DRUGS (1)
  1. ELAPRASE [Suspect]
     Indication: MUCOPOLYSACCHARIDOSIS
     Dosage: 12 MG, THEN 6 MG  QWEEK  IV
     Route: 042
     Dates: start: 20061226

REACTIONS (2)
  - INFUSION RELATED REACTION [None]
  - PRURITUS [None]
